FAERS Safety Report 9033006 (Version 1)
Quarter: 2013Q1

REPORT INFORMATION
  Report Type: Spontaneous
  Country: US (occurrence: US)
  Receive Date: 20130128
  Receipt Date: 20130128
  Transmission Date: 20140127
  Serious: No
  Sender: FDA-Public Use
  Company Number: US-MYLANLABS-2012S1022563

PATIENT
  Age: 60 Year
  Sex: Female
  Weight: 73.48 kg

DRUGS (2)
  1. LOSARTAN POTASSIUM [Suspect]
     Indication: HYPERTENSION
  2. HYDROCHLOROTHIAZIDE [Suspect]
     Indication: HYPERTENSION

REACTIONS (3)
  - Lip swelling [Recovering/Resolving]
  - Cheilitis [Recovering/Resolving]
  - Oral discomfort [Not Recovered/Not Resolved]
